FAERS Safety Report 18977737 (Version 1)
Quarter: 2021Q1

REPORT INFORMATION
  Report Type: Spontaneous
  Country: DE (occurrence: DE)
  Receive Date: 20210306
  Receipt Date: 20210306
  Transmission Date: 20210420
  Serious: Yes (Other)
  Sender: FDA-Public Use
  Company Number: NVSC2019DE095417

PATIENT
  Sex: Male

DRUGS (1)
  1. VALSARTAN ? 1 A PHARMA 80 MG FILMTABLETTEN [Suspect]
     Active Substance: VALSARTAN
     Indication: HYPERTENSION
     Dosage: 80 MG, QD
     Route: 065
     Dates: start: 2016, end: 2019

REACTIONS (3)
  - Poisoning [Unknown]
  - Fear of disease [Unknown]
  - Psychological trauma [Unknown]
